FAERS Safety Report 13469285 (Version 2)
Quarter: 2017Q3

REPORT INFORMATION
  Report Type: Spontaneous
  Country: US (occurrence: US)
  Receive Date: 20170421
  Receipt Date: 20170725
  Transmission Date: 20171127
  Serious: No
  Sender: FDA-Public Use
  Company Number: US-JNJFOC-20170411671

PATIENT
  Age: 84 Year
  Sex: Male
  Weight: 136.08 kg

DRUGS (4)
  1. WARFARIN [Concomitant]
     Active Substance: WARFARIN
     Indication: ANTICOAGULANT THERAPY
     Route: 065
     Dates: start: 2010
  2. TYLENOL EXTRA STRENGTH [Suspect]
     Active Substance: ACETAMINOPHEN
     Indication: PAIN
     Route: 048
     Dates: start: 20170327
  3. METOPROLOL. [Concomitant]
     Active Substance: METOPROLOL
     Indication: HEART RATE
     Route: 065
     Dates: start: 2010
  4. TYLENOL EXTRA STRENGTH [Suspect]
     Active Substance: ACETAMINOPHEN
     Indication: PAIN
     Route: 048
     Dates: start: 201705, end: 20170510

REACTIONS (4)
  - Drug effect incomplete [Unknown]
  - Drug effect delayed [Unknown]
  - Inappropriate schedule of drug administration [Unknown]
  - Drug administration error [Unknown]

NARRATIVE: CASE EVENT DATE: 20170327
